FAERS Safety Report 5114790-6 (Version None)
Quarter: 2006Q3

REPORT INFORMATION
  Report Type: 
  Country: None (occurrence: None)
  Receive Date: 20060921
  Receipt Date: 20060911
  Transmission Date: 20061208
  Serious: Yes (Hospitalization)
  Sender: FDA-Public Use
  Company Number: GXKR2006GB05627

PATIENT
  Age: 77 Year
  Sex: Female

DRUGS (7)
  1. METRONIDAZOLE [Suspect]
     Dosage: 400 MG, BID, ORAL
     Route: 048
     Dates: start: 20060707, end: 20060713
  2. FLUCONAZOLE [Suspect]
     Dosage: 50 MG, QD, ORAL
     Route: 048
     Dates: start: 20060704, end: 20060713
  3. PIPERACILLIN SODIUM AND TAZOBACTAM SODIUM [Suspect]
     Dosage: INTRAVENOUS
     Route: 042
     Dates: end: 20060713
  4. ACETYLCYSTEINE [Concomitant]
  5. AMLODIPINE [Concomitant]
  6. CODEINE SUL TAB [Concomitant]
  7. ACETAMINOPHEN [Concomitant]

REACTIONS (1)
  - LIVER FUNCTION TEST ABNORMAL [None]
